FAERS Safety Report 7255657-7 (Version None)
Quarter: 2011Q1

REPORT INFORMATION
  Report Type: 
  Country: None (occurrence: None)
  Receive Date: 20110129
  Receipt Date: 20100827
  Transmission Date: 20110831
  Serious: No
  Sender: FDA-Public Use
  Company Number: US-ABBOTT-10P-163-0666865-00

PATIENT
  Age: 11 Year
  Sex: Female

DRUGS (3)
  1. HUMIRA [Suspect]
     Indication: SARCOIDOSIS
     Dates: start: 20100501
  2. MTX [Concomitant]
     Indication: SARCOIDOSIS
  3. LEUCOVORIN CALCIUM [Concomitant]
     Indication: SARCOIDOSIS

REACTIONS (1)
  - INJECTION SITE PAIN [None]
